FAERS Safety Report 17941705 (Version 2)
Quarter: 2021Q3

REPORT INFORMATION
  Report Type: Spontaneous
  Country: US (occurrence: US)
  Receive Date: 20200625
  Receipt Date: 20210823
  Transmission Date: 20211014
  Serious: No
  Sender: FDA-Public Use
  Company Number: US-SA-2020SA158494

PATIENT
  Age: 56 Year
  Sex: Female

DRUGS (2)
  1. DUPIXENT [Suspect]
     Active Substance: DUPILUMAB
     Indication: DERMATITIS
     Dosage: 300 MG, QOW
     Route: 058
     Dates: start: 202005
  2. DUPIXENT [Suspect]
     Active Substance: DUPILUMAB
     Indication: DERMATITIS ATOPIC

REACTIONS (10)
  - Lip swelling [Unknown]
  - Visual impairment [Unknown]
  - Intraocular pressure increased [Unknown]
  - Paraesthesia [Unknown]
  - Rash [Unknown]
  - Vision blurred [Unknown]
  - Erythema [Unknown]
  - Skin exfoliation [Unknown]
  - Diplopia [Unknown]
  - Cheilitis [Unknown]

NARRATIVE: CASE EVENT DATE: 2020
